FAERS Safety Report 23265825 (Version 1)
Quarter: 2023Q4

REPORT INFORMATION
  Report Type: Report from Study
  Country: US (occurrence: US)
  Receive Date: 20231206
  Receipt Date: 20231206
  Transmission Date: 20240109
  Serious: Yes (Death, Other)
  Sender: FDA-Public Use
  Company Number: US-ACORDA-ACO_176972_2023

PATIENT

DRUGS (4)
  1. INBRIJA [Suspect]
     Active Substance: LEVODOPA
     Indication: Parkinson^s disease
     Dosage: 2 DOSAGE FORM (84 MG), PRN (UP TO FIVE TIMES DAILY)
     Dates: start: 20220601, end: 202310
  2. INBRIJA [Suspect]
     Active Substance: LEVODOPA
     Indication: On and off phenomenon
     Dosage: 2 DOSAGE FORM (84 MILLIGRAM), PRN (UP TO FIVE TIMES DAILY)
     Dates: start: 20220601, end: 202310
  3. RYTARY [Concomitant]
     Active Substance: CARBIDOPA\LEVODOPA
     Indication: Product used for unknown indication
     Dosage: 1 DOSAGE FORM (23.75 MILLIGRAM-95 MILLIGRAM; 1 CAPSULE WITH RYTARY 195 MILLIGRAM FOR THE FIRST, SECO
     Route: 048
  4. RYTARY [Concomitant]
     Active Substance: CARBIDOPA\LEVODOPA
     Dosage: 2 DOSAGE FORM (48.75-195MG), AT 7AM, 12PM, 8PM, AND 1 CAPSULE AT 4PM
     Route: 048

REACTIONS (1)
  - Death [Fatal]

NARRATIVE: CASE EVENT DATE: 20231001
